FAERS Safety Report 12473170 (Version 2)
Quarter: 2016Q2

REPORT INFORMATION
  Report Type: Spontaneous
  Country: IN (occurrence: IN)
  Receive Date: 20160616
  Receipt Date: 20160622
  Transmission Date: 20160815
  Serious: Yes (Other)
  Sender: FDA-Public Use
  Company Number: IN-WATSON-2016-12309

PATIENT
  Age: 45 Year
  Sex: Male

DRUGS (1)
  1. SILDENAFIL. [Suspect]
     Active Substance: SILDENAFIL
     Indication: LOSS OF LIBIDO
     Dosage: 100 MG, TOTAL
     Route: 048
     Dates: start: 20140619

REACTIONS (2)
  - Erythema multiforme [Recovered/Resolved]
  - Prescription drug used without a prescription [Recovered/Resolved]

NARRATIVE: CASE EVENT DATE: 20140621
